FAERS Safety Report 17092307 (Version 1)
Quarter: 2019Q4

REPORT INFORMATION
  Report Type: Report from Study
  Country: FR (occurrence: FR)
  Receive Date: 20191129
  Receipt Date: 20191129
  Transmission Date: 20200122
  Serious: Yes (Death, Other)
  Sender: FDA-Public Use
  Company Number: FR-PFIZER INC-2019513304

PATIENT

DRUGS (10)
  1. MERONEM [Suspect]
     Active Substance: MEROPENEM
     Indication: FEBRILE BONE MARROW APLASIA
     Dosage: 3 G, UNK
     Route: 042
     Dates: start: 20180322
  2. TACROLIMUS. [Concomitant]
     Active Substance: TACROLIMUS
     Indication: PROPHYLAXIS
  3. DEFITELIO [Suspect]
     Active Substance: DEFIBROTIDE SODIUM
     Indication: PROPHYLAXIS
     Dosage: 21 MG/KG, DAILY
     Route: 065
     Dates: start: 20180307
  4. THIOTEPA. [Concomitant]
     Active Substance: THIOTEPA
     Indication: BONE MARROW CONDITIONING REGIMEN
     Dosage: 10 MG/KG  X 5 MG/KG
  5. FLUDARABINE [Concomitant]
     Active Substance: FLUDARABINE PHOSPHATE
     Indication: BONE MARROW CONDITIONING REGIMEN
     Dosage: 120 MG/M 2
  6. CICLOSPORIN [Concomitant]
     Active Substance: CYCLOSPORINE
     Indication: PROPHYLAXIS
  7. ZYVOXID [Suspect]
     Active Substance: LINEZOLID
     Dosage: 1200 MG, UNK
     Route: 042
     Dates: start: 20180322
  8. MYCOPHENOLATE MOFETIL. [Concomitant]
     Active Substance: MYCOPHENOLATE MOFETIL
     Indication: PROPHYLAXIS
  9. CYTARABINE. [Concomitant]
     Active Substance: CYTARABINE
  10. BUSULFAN. [Concomitant]
     Active Substance: BUSULFAN
     Indication: BONE MARROW CONDITIONING REGIMEN
     Dosage: 6.4 MG/KG

REACTIONS (4)
  - Haemorrhage [Fatal]
  - Cardiac failure [Fatal]
  - Infection [Fatal]
  - Respiratory distress [Fatal]

NARRATIVE: CASE EVENT DATE: 20180323
